FAERS Safety Report 16822360 (Version 2)
Quarter: 2019Q4

REPORT INFORMATION
  Report Type: Spontaneous
  Country: JP (occurrence: JP)
  Receive Date: 20190918
  Receipt Date: 20191002
  Transmission Date: 20200122
  Serious: Yes (Hospitalization)
  Sender: FDA-Public Use
  Company Number: JP-PERRIGO-19JP011085

PATIENT
  Age: 56 Year
  Sex: Female
  Weight: 29 kg

DRUGS (1)
  1. IBUPROFEN. [Suspect]
     Active Substance: IBUPROFEN
     Indication: HEADACHE
     Dosage: UNKNOWN, UNKNOWN
     Route: 048

REACTIONS (4)
  - Reye^s syndrome [Recovered/Resolved]
  - Altered state of consciousness [Recovered/Resolved]
  - Respiratory failure [Recovered/Resolved]
  - Hepatic failure [Recovered/Resolved]
